FAERS Safety Report 23724117 (Version 1)
Quarter: 2024Q2

REPORT INFORMATION
  Report Type: Spontaneous
  Country: ES (occurrence: ES)
  Receive Date: 20240409
  Receipt Date: 20240409
  Transmission Date: 20240717
  Serious: Yes (Other)
  Sender: FDA-Public Use
  Company Number: None

PATIENT
  Age: 61 Year
  Sex: Female
  Weight: 92 kg

DRUGS (4)
  1. ENALAPRIL [Suspect]
     Active Substance: ENALAPRIL
     Indication: Essential hypertension
     Dosage: TIME INTERVAL: TOTAL: 10.0 MG DECE
     Route: 048
     Dates: start: 20230523
  2. SITAGLIPTIN PHOSPHATE [Concomitant]
     Active Substance: SITAGLIPTIN PHOSPHATE
     Indication: Type 2 diabetes mellitus
     Dosage: TIME INTERVAL: TOTAL: 100.0 MG C/24 H: 56 TABLETS:
     Route: 048
     Dates: start: 20230613
  3. METFORMINA KERN PHARMA [Concomitant]
     Indication: Type 2 diabetes mellitus
     Dosage: TIME INTERVAL: TOTAL: 1000.0 MG DECE: EFG 50 TABLETS:
     Route: 048
     Dates: start: 20230719
  4. SIMVASTATIN [Concomitant]
     Active Substance: SIMVASTATIN
     Indication: Hypercholesterolaemia
     Dosage: TIME INTERVAL: TOTAL: 10.0 MG CE: AUROVITAS EFG, 28 TABLETS:
     Route: 048
     Dates: start: 20180831

REACTIONS (1)
  - Psoriasis [Recovering/Resolving]

NARRATIVE: CASE EVENT DATE: 20230701
